FAERS Safety Report 9520619 (Version 1)
Quarter: 2013Q3

REPORT INFORMATION
  Report Type: Spontaneous
  Country: SE (occurrence: US)
  Receive Date: 20130913
  Receipt Date: 20130913
  Transmission Date: 20140515
  Serious: Yes (Death)
  Sender: FDA-Public Use
  Company Number: SE-ROCHE-1271541

PATIENT
  Sex: Male

DRUGS (6)
  1. DIAZEPAM [Suspect]
     Indication: ANXIETY
     Route: 065
  2. OXYCODONE [Concomitant]
     Indication: ANALGESIC THERAPY
     Route: 065
  3. HYDROCODONE HCL [Concomitant]
     Indication: ANALGESIC THERAPY
     Route: 065
  4. TEMAZEPAM [Concomitant]
     Indication: ANXIETY
     Route: 065
  5. XANAX [Concomitant]
     Indication: ANXIETY
     Route: 065
  6. DOXYLAMINE [Concomitant]
     Indication: SLEEP DISORDER
     Route: 065

REACTIONS (1)
  - Death [Fatal]
